FAERS Safety Report 7554521-3 (Version None)
Quarter: 2011Q2

REPORT INFORMATION
  Report Type: 
  Country: None (occurrence: None)
  Receive Date: 20110617
  Receipt Date: 20110607
  Transmission Date: 20111010
  Serious: Yes (Death)
  Sender: FDA-Public Use
  Company Number: B0726547A

PATIENT
  Age: 5 Year
  Sex: Male

DRUGS (5)
  1. FLUDARABINE PHOSPHATE [Concomitant]
     Route: 065
  2. ANTI-THYMOCYTE GLOBULIN NOS [Concomitant]
     Indication: BONE MARROW CONDITIONING REGIMEN
     Route: 065
  3. TACROLIMUS [Concomitant]
     Route: 065
  4. PREDNISOLONE [Concomitant]
     Route: 065
  5. BUSULFAN [Suspect]
     Indication: BONE MARROW CONDITIONING REGIMEN
     Route: 065

REACTIONS (3)
  - EPSTEIN-BARR VIRUS INFECTION [None]
  - PNEUMOCYSTIS JIROVECI INFECTION [None]
  - FUNGAL INFECTION [None]
